FAERS Safety Report 25528384 (Version 1)
Quarter: 2025Q3

REPORT INFORMATION
  Report Type: Spontaneous
  Country: US (occurrence: US)
  Receive Date: 20250708
  Receipt Date: 20250708
  Transmission Date: 20251021
  Serious: Yes (Hospitalization, Other)
  Sender: ACCORD
  Company Number: US-Accord-493324

PATIENT
  Age: 62 Year
  Sex: Male

DRUGS (1)
  1. FINGOLIMOD [Suspect]
     Active Substance: FINGOLIMOD
     Indication: Multiple sclerosis

REACTIONS (3)
  - Disseminated varicella zoster virus infection [Unknown]
  - Multiple sclerosis [Recovered/Resolved]
  - Rebound effect [Recovered/Resolved]
